FAERS Safety Report 9129669 (Version 3)
Quarter: 2013Q2

REPORT INFORMATION
  Report Type: Spontaneous
  Country: US (occurrence: US)
  Receive Date: 20130125
  Receipt Date: 20130419
  Transmission Date: 20140414
  Serious: Yes (Other)
  Sender: FDA-Public Use
  Company Number: CHPA2013US001436

PATIENT
  Age: 69 Year
  Sex: Male

DRUGS (3)
  1. VOLTAREN GEL [Suspect]
     Indication: CARPAL TUNNEL SYNDROME
     Dosage: UNK, 3-4 TIMES DAILY
     Route: 061
  2. VOLTAREN GEL [Suspect]
     Indication: ARTHRITIS
  3. CORTISONE [Concomitant]
     Indication: ARTHRITIS

REACTIONS (6)
  - Intervertebral disc protrusion [Not Recovered/Not Resolved]
  - Fall [Recovered/Resolved]
  - Blood alcohol increased [Unknown]
  - Road traffic accident [Unknown]
  - Off label use [Unknown]
  - Underdose [Unknown]
